FAERS Safety Report 21097852 (Version 3)
Quarter: 2022Q4

REPORT INFORMATION
  Report Type: Spontaneous
  Country: JP (occurrence: JP)
  Receive Date: 20220719
  Receipt Date: 20221116
  Transmission Date: 20230112
  Serious: Yes (Other)
  Sender: FDA-Public Use
  Company Number: JP-CHUGAI-2022027178

PATIENT
  Age: 47 Year
  Sex: Male
  Weight: 55 kg

DRUGS (1)
  1. HEMLIBRA [Suspect]
     Active Substance: EMICIZUMAB-KXWH
     Indication: Haemophilia A without inhibitors
     Dosage: UNK, ONCE/2WEEKS
     Route: 058
     Dates: start: 201904

REACTIONS (3)
  - Haemarthrosis [Unknown]
  - Haemorrhage [Unknown]
  - Drug specific antibody present [Unknown]

NARRATIVE: CASE EVENT DATE: 20220701
